FAERS Safety Report 8558857-9 (Version None)
Quarter: 2012Q3

REPORT INFORMATION
  Report Type: 
  Country: None (occurrence: None)
  Receive Date: 20120801
  Receipt Date: 20120725
  Transmission Date: 20120928
  Serious: Yes (Other)
  Sender: FDA-Public Use
  Company Number: PHEH2012US014726

PATIENT
  Sex: Male

DRUGS (9)
  1. CARDURA [Concomitant]
  2. BUMEX [Concomitant]
  3. LASIX [Concomitant]
  4. XANAX [Concomitant]
  5. NORVASC [Suspect]
  6. DIOVAN [Suspect]
     Dosage: 320 MG, UNK
  7. SIMVASTATIN [Concomitant]
  8. COREG [Concomitant]
  9. EXFORGE [Suspect]
     Dosage: 1 DF (320/10 MG), UNK

REACTIONS (7)
  - SLEEP APNOEA SYNDROME [None]
  - PAIN [None]
  - VISUAL IMPAIRMENT [None]
  - CEREBROVASCULAR ACCIDENT [None]
  - CONFUSIONAL STATE [None]
  - COMPLEX REGIONAL PAIN SYNDROME [None]
  - AMNESIA [None]
